FAERS Safety Report 6091928-8 (Version None)
Quarter: 2009Q1

REPORT INFORMATION
  Report Type: 
  Country: None (occurrence: None)
  Receive Date: 20090225
  Receipt Date: 20081023
  Transmission Date: 20090719
  Serious: Yes (Other)
  Sender: FDA-Public Use
  Company Number: A0751106A

PATIENT
  Age: 52 Year
  Sex: Female
  Weight: 72.7 kg

DRUGS (4)
  1. VALTREX [Suspect]
     Indication: IMMUNOSUPPRESSANT DRUG THERAPY
     Route: 065
  2. WELCHOL [Concomitant]
  3. VERAPAMIL [Concomitant]
  4. TRAMADOL [Concomitant]

REACTIONS (2)
  - HEPATIC ENZYME ABNORMAL [None]
  - HEPATIC ENZYME INCREASED [None]
